FAERS Safety Report 6747968-6 (Version None)
Quarter: 2010Q2

REPORT INFORMATION
  Report Type: 
  Country: None (occurrence: None)
  Receive Date: 20100528
  Receipt Date: 20100521
  Transmission Date: 20101027
  Serious: Yes (Other)
  Sender: FDA-Public Use
  Company Number: US-MERCK-1005USA03110

PATIENT
  Age: 13 Year
  Sex: Female

DRUGS (2)
  1. SINGULAIR [Suspect]
     Indication: HYPERSENSITIVITY
     Route: 048
     Dates: start: 20100210, end: 20100510
  2. SINGULAIR [Suspect]
     Route: 048
     Dates: start: 20060101, end: 20100101

REACTIONS (6)
  - ABNORMAL BEHAVIOUR [None]
  - DISTURBANCE IN ATTENTION [None]
  - MAJOR DEPRESSION [None]
  - OVERDOSE [None]
  - SUICIDAL IDEATION [None]
  - VISUAL ACUITY REDUCED [None]
